FAERS Safety Report 15228153 (Version 1)
Quarter: 2018Q3

REPORT INFORMATION
  Report Type: Spontaneous
  Country: IT (occurrence: IT)
  Receive Date: 20180801
  Receipt Date: 20180801
  Transmission Date: 20181010
  Serious: Yes (Hospitalization)
  Sender: FDA-Public Use
  Company Number: PHHY2018IT061923

PATIENT
  Age: 68 Year
  Sex: Male

DRUGS (5)
  1. ZYTIGA [Concomitant]
     Active Substance: ABIRATERONE ACETATE
     Indication: PROSTATE CANCER
     Dosage: 1000 MG, UNK
     Route: 048
  2. SOLDESAM [Suspect]
     Active Substance: DEXAMETHASONE
     Indication: METASTASES TO BONE
     Dosage: 10 MG, QD
     Route: 048
     Dates: start: 20141201, end: 20150831
  3. ENANTONE DIE [Concomitant]
     Indication: PROSTATE CANCER
     Dosage: 1 MG, UNK
     Route: 058
  4. DENOSUMAB [Suspect]
     Active Substance: DENOSUMAB
     Indication: METASTASES TO BONE
     Dosage: 120 MG, CYCLIC
     Route: 058
     Dates: start: 20140601, end: 20160228
  5. DOCETAXEL. [Suspect]
     Active Substance: DOCETAXEL
     Indication: PROSTATE CANCER
     Dosage: 75 MG, CYCLIC
     Route: 042
     Dates: start: 20150901, end: 20160426

REACTIONS (2)
  - Osteonecrosis of jaw [Not Recovered/Not Resolved]
  - Osteitis [Not Recovered/Not Resolved]

NARRATIVE: CASE EVENT DATE: 20160601
